FAERS Safety Report 9883047 (Version 1)
Quarter: 2014Q1

REPORT INFORMATION
  Report Type: Report from Study
  Country: GB (occurrence: GB)
  Receive Date: 20140208
  Receipt Date: 20140208
  Transmission Date: 20141002
  Serious: Yes (Death, Other)
  Sender: FDA-Public Use
  Company Number: GB-ROCHE-1341487

PATIENT
  Sex: Female
  Weight: 63 kg

DRUGS (2)
  1. RITUXIMAB [Suspect]
     Indication: RHEUMATOID ARTHRITIS
     Dosage: DATE OF LAST DOSE PRIOR TO SAE: 16/AUG/2012
     Route: 065
     Dates: start: 20101203
  2. METHOTREXATE [Concomitant]

REACTIONS (3)
  - Vascular dementia [Fatal]
  - Hypertension [Fatal]
  - Type 2 diabetes mellitus [Unknown]
